FAERS Safety Report 11799244 (Version 3)
Quarter: 2016Q1

REPORT INFORMATION
  Report Type: Report from Study
  Country: US (occurrence: US)
  Receive Date: 20151203
  Receipt Date: 20160129
  Transmission Date: 20160525
  Serious: No
  Sender: FDA-Public Use
  Company Number: US-AMGEN-USASL2015123514

PATIENT
  Age: 62 Year
  Sex: Female
  Weight: 75.75 kg

DRUGS (8)
  1. REPATHA [Suspect]
     Active Substance: EVOLOCUMAB
     Indication: HYPERLIPIDAEMIA
     Dosage: 140 MG, Q2WK
     Route: 058
     Dates: start: 20150929
  2. CARNITINE [Concomitant]
     Active Substance: CARNITINE
     Dosage: 250 MG, QD
     Route: 048
  3. NAPROSYN [Concomitant]
     Active Substance: NAPROXEN
     Dosage: 500 MG, AS NECESSARY
     Route: 048
  4. NITROGLYCERIN. [Concomitant]
     Active Substance: NITROGLYCERIN
     Dosage: 0.4 MG, UNK
  5. PROBIOTIC                          /06395501/ [Concomitant]
     Active Substance: BIFIDOBACTERIUM ANIMALIS SUBSP. LACTIS
     Dosage: 10 BILLION CELL CAPSULE, QD
  6. REPATHA [Suspect]
     Active Substance: EVOLOCUMAB
     Indication: CORONARY ARTERY DISEASE
  7. KYNAMRO [Suspect]
     Active Substance: MIPOMERSEN SODIUM
     Indication: TYPE V HYPERLIPIDAEMIA
     Route: 065
  8. VITAMIN D3 [Concomitant]
     Active Substance: CHOLECALCIFEROL
     Dosage: 1 MILLION IU, QD

REACTIONS (12)
  - Periarthritis [Recovering/Resolving]
  - Drug dose omission [Unknown]
  - Tendon disorder [Recovering/Resolving]
  - Limb discomfort [Unknown]
  - Arteriosclerosis coronary artery [Unknown]
  - Muscle disorder [Not Recovered/Not Resolved]
  - Low density lipoprotein increased [Unknown]
  - Nocturia [None]
  - Arthralgia [None]
  - Muscle spasms [Unknown]
  - Non-high-density lipoprotein cholesterol increased [Unknown]
  - Myalgia [None]

NARRATIVE: CASE EVENT DATE: 2015
